FAERS Safety Report 20155683 (Version 1)
Quarter: 2021Q4

REPORT INFORMATION
  Report Type: Report from Study
  Country: TR (occurrence: TR)
  Receive Date: 20211207
  Receipt Date: 20211207
  Transmission Date: 20220304
  Serious: Yes (Other)
  Sender: FDA-Public Use
  Company Number: TR-NOVARTISPH-NVSC2021TR084211

PATIENT

DRUGS (1)
  1. ALPELISIB [Suspect]
     Active Substance: ALPELISIB
     Indication: Metastatic neoplasm
     Dosage: UNK
     Route: 065

REACTIONS (2)
  - Metastatic neoplasm [Unknown]
  - Malignant neoplasm progression [Unknown]
